FAERS Safety Report 6145890-X (Version None)
Quarter: 2009Q2

REPORT INFORMATION
  Report Type: 
  Country: None (occurrence: None)
  Receive Date: 20090407
  Receipt Date: 20090327
  Transmission Date: 20091009
  Serious: Yes (Hospitalization, Other)
  Sender: FDA-Public Use
  Company Number: BR-ROCHE-624460

PATIENT
  Sex: Male

DRUGS (3)
  1. CEFTRIAXONE [Suspect]
     Dosage: DOSE:75 MG/KG BODY WEIGHT
     Route: 042
  2. CEFTRIAXONE [Suspect]
     Dosage: A MINIMUM PERIOD OF 21 DAYS
     Route: 042
  3. CEFTRIAXONE [Suspect]
     Route: 042

REACTIONS (2)
  - CONVULSION [None]
  - MENINGITIS BACTERIAL [None]
